FAERS Safety Report 9434245 (Version 2)
Quarter: 2014Q2

REPORT INFORMATION
  Report Type: Spontaneous
  Country: FR (occurrence: FR)
  Receive Date: 20130801
  Receipt Date: 20140528
  Transmission Date: 20141212
  Serious: Yes (Hospitalization)
  Sender: FDA-Public Use
  Company Number: PHHY2013FR077634

PATIENT
  Age: 60 Year
  Sex: Male

DRUGS (5)
  1. CARBAMAZEPINE SANDOZ [Suspect]
     Indication: EPILEPSY
     Dosage: 200 MG, UNK
     Route: 048
     Dates: start: 20130615, end: 20130621
  2. CARBAMAZEPINE SANDOZ [Suspect]
     Indication: EPILEPSY
     Dosage: 400 MG, BID
     Route: 048
     Dates: start: 20130615, end: 20130621
  3. AXELER [Concomitant]
  4. KARDEGIC [Concomitant]
  5. KEPPRA [Concomitant]

REACTIONS (5)
  - Drug level changed [Recovered/Resolved]
  - Gait disturbance [Recovered/Resolved]
  - Dysarthria [Recovered/Resolved]
  - Nystagmus [Recovered/Resolved]
  - Asterixis [Recovered/Resolved]
